FAERS Safety Report 8241796-0 (Version None)
Quarter: 2012Q1

REPORT INFORMATION
  Report Type: 
  Country: None (occurrence: None)
  Receive Date: 20120328
  Receipt Date: 20120322
  Transmission Date: 20120608
  Serious: Yes (Hospitalization, Other)
  Sender: FDA-Public Use
  Company Number: US-AMGEN-USASP2011066597

PATIENT
  Age: 90 Year
  Sex: Female
  Weight: 61.224 kg

DRUGS (6)
  1. LASIX [Concomitant]
     Indication: CARDIAC FAILURE CONGESTIVE
     Dosage: 20 G, BID
     Route: 048
  2. PROLIA [Suspect]
     Indication: OSTEOPOROSIS
     Dosage: 60 MG, Q6MO
     Dates: start: 20111010
  3. COUMADIN [Concomitant]
     Indication: ATRIAL FIBRILLATION
     Dosage: 3 G, BID
     Route: 048
  4. TOPROL-XL [Concomitant]
     Indication: HYPERTENSION
     Dosage: 100 G, BID
     Route: 048
  5. LASIX [Concomitant]
     Indication: HYPERTENSION
  6. ARICEPT [Concomitant]
     Indication: MEMORY IMPAIRMENT
     Dosage: 3 G, BID
     Route: 048

REACTIONS (4)
  - OEDEMA PERIPHERAL [None]
  - SKIN ULCER [None]
  - PAIN IN EXTREMITY [None]
  - CELLULITIS [None]
